FAERS Safety Report 24308564 (Version 1)
Quarter: 2024Q3

REPORT INFORMATION
  Report Type: Report from Study
  Country: ZA (occurrence: None)
  Receive Date: 20240911
  Receipt Date: 20240911
  Transmission Date: 20241016
  Serious: Yes (Death)
  Sender: ASTRAZENECA
  Company Number: 2024A204619

PATIENT
  Age: 78 Year
  Sex: Male

DRUGS (6)
  1. DAPAGLIFLOZIN PROPANEDIOL [Suspect]
     Active Substance: DAPAGLIFLOZIN PROPANEDIOL
     Indication: Diabetes mellitus
     Dosage: 10
     Route: 048
  2. EURODRON [Concomitant]
     Dosage: 4.0MG UNKNOWN
     Route: 058
  3. LIPOGEN [Concomitant]
     Indication: Blood cholesterol
     Dosage: 10.0MG UNKNOWN
     Route: 048
  4. METFORMIN HYDROCHLORIDE [Concomitant]
     Active Substance: METFORMIN HYDROCHLORIDE
     Indication: Diabetes mellitus
     Dosage: 500.0MG UNKNOWN
     Route: 048
  5. BISOPROLOL FUMARATE [Concomitant]
     Active Substance: BISOPROLOL FUMARATE
     Indication: Hypertension
     Dosage: 5.0MG UNKNOWN
     Route: 048
  6. SPIRACTIN [Concomitant]
     Indication: Hypertension
     Dosage: 25.0MG UNKNOWN
     Route: 048

REACTIONS (1)
  - Death [Fatal]
